FAERS Safety Report 12043734 (Version 6)
Quarter: 2016Q3

REPORT INFORMATION
  Report Type: Report from Study
  Country: BR (occurrence: BR)
  Receive Date: 20160208
  Receipt Date: 20160718
  Transmission Date: 20161109
  Serious: Yes (Hospitalization, Other)
  Sender: FDA-Public Use
  Company Number: BR-ROCHE-1550636

PATIENT
  Age: 59 Year
  Sex: Female
  Weight: 58 kg

DRUGS (12)
  1. PREDNISONE. [Concomitant]
     Active Substance: PREDNISONE
     Indication: ARTHRITIS
  2. OMEPRAZOLE. [Concomitant]
     Active Substance: OMEPRAZOLE
     Indication: GASTRITIS
     Route: 065
  3. PARACETAMOL [Concomitant]
     Active Substance: ACETAMINOPHEN
  4. NAPROXEN. [Concomitant]
     Active Substance: NAPROXEN
  5. FOLINA (FOLIC ACID) [Concomitant]
     Active Substance: FOLIC ACID
     Indication: ANAEMIA
     Route: 065
  6. CLAVULIN [Concomitant]
     Active Substance: AMOXICILLIN\CLAVULANIC ACID
     Route: 065
  7. AMOXICILLIN. [Concomitant]
     Active Substance: AMOXICILLIN
  8. OMEGA 3 [Concomitant]
     Active Substance: OMEGA-3 FATTY ACIDS
  9. CORTISONE [Concomitant]
     Active Substance: CORTISONE\HYDROCORTISONE
     Indication: PAIN
     Route: 065
  10. METHOTREXATE. [Concomitant]
     Active Substance: METHOTREXATE
     Route: 065
  11. ACTEMRA [Suspect]
     Active Substance: TOCILIZUMAB
     Indication: RHEUMATOID ARTHRITIS
     Dosage: LAST INFUSION ON 01/MAY/2016
     Route: 042
     Dates: start: 20150303
  12. MELOXICAM. [Concomitant]
     Active Substance: MELOXICAM

REACTIONS (31)
  - Ligament sprain [Unknown]
  - Tooth disorder [Unknown]
  - Oropharyngeal pain [Recovered/Resolved]
  - Nasal disorder [Not Recovered/Not Resolved]
  - Swelling [Unknown]
  - Thrombocytopenia [Unknown]
  - Nausea [Unknown]
  - Cough [Not Recovered/Not Resolved]
  - Headache [Not Recovered/Not Resolved]
  - Pain in extremity [Unknown]
  - Blood cholesterol increased [Recovered/Resolved]
  - Blood cholesterol abnormal [Unknown]
  - Tendon disorder [Unknown]
  - Nasopharyngitis [Recovered/Resolved]
  - Pruritus generalised [Not Recovered/Not Resolved]
  - Hypersensitivity [Unknown]
  - Tooth injury [Recovering/Resolving]
  - Influenza [Unknown]
  - Eye pruritus [Not Recovered/Not Resolved]
  - Deafness [Not Recovered/Not Resolved]
  - Dizziness [Unknown]
  - Pain [Not Recovered/Not Resolved]
  - Ear disorder [Not Recovered/Not Resolved]
  - Nasal pruritus [Not Recovered/Not Resolved]
  - Pruritus [Unknown]
  - Foot deformity [Unknown]
  - Feeling hot [Unknown]
  - Impaired healing [Unknown]
  - Tinnitus [Not Recovered/Not Resolved]
  - Rhinitis [Unknown]
  - Nasal congestion [Unknown]

NARRATIVE: CASE EVENT DATE: 20150323
